FAERS Safety Report 12768706 (Version 1)
Quarter: 2016Q3

REPORT INFORMATION
  Report Type: Spontaneous
  Country: JP (occurrence: JP)
  Receive Date: 20160921
  Receipt Date: 20160921
  Transmission Date: 20161109
  Serious: Yes (Hospitalization)
  Sender: FDA-Public Use
  Company Number: JP-009507513-1609JPN008327

PATIENT

DRUGS (1)
  1. BELSOMRA [Suspect]
     Active Substance: SUVOREXANT
     Dosage: ABOUT 60 TABS
     Route: 048
     Dates: start: 201609, end: 201609

REACTIONS (2)
  - Incorrect dose administered [None]
  - Overdose [Unknown]

NARRATIVE: CASE EVENT DATE: 201609
